FAERS Safety Report 13837920 (Version 1)
Quarter: 2017Q3

REPORT INFORMATION
  Report Type: Spontaneous
  Country: IT (occurrence: IT)
  Receive Date: 20170807
  Receipt Date: 20170807
  Transmission Date: 20171127
  Serious: Yes (Hospitalization)
  Sender: FDA-Public Use
  Company Number: IT-ASTRAZENECA-2017SE79350

PATIENT
  Age: 20236 Day
  Sex: Male
  Weight: 80 kg

DRUGS (7)
  1. FLUIMUCIL [Concomitant]
     Active Substance: ACETYLCYSTEINE
  2. LANSOX [Concomitant]
     Active Substance: LANSOPRAZOLE
     Dosage: 30.0MG UNKNOWN
     Route: 048
  3. CLEXANE T [Suspect]
     Active Substance: ENOXAPARIN SODIUM
     Indication: PROPHYLAXIS
     Dosage: (STRENGHT: 6000 IU, AXA 0.6 ML), 1 DOSAGE UNIT/DAILY
     Route: 058
     Dates: start: 20170505, end: 20170506
  4. TOTALIP [Concomitant]
     Active Substance: ATORVASTATIN
  5. CARDIOASPIRIN [Suspect]
     Active Substance: ASPIRIN
     Indication: PROPHYLAXIS
     Route: 048
     Dates: start: 20170504, end: 20170506
  6. BIFRIL [Concomitant]
     Active Substance: ZOFENOPRIL
  7. BRILIQUE [Suspect]
     Active Substance: TICAGRELOR
     Indication: PROPHYLAXIS
     Route: 048
     Dates: start: 20170504, end: 20170507

REACTIONS (3)
  - Cerebral haemorrhage [Recovering/Resolving]
  - Hemianopia homonymous [Recovering/Resolving]
  - Headache [Recovering/Resolving]

NARRATIVE: CASE EVENT DATE: 20170506
